FAERS Safety Report 25947121 (Version 2)
Quarter: 2025Q4

REPORT INFORMATION
  Report Type: Spontaneous
  Country: US (occurrence: US)
  Receive Date: 20251022
  Receipt Date: 20251113
  Transmission Date: 20260118
  Serious: Yes (Hospitalization, Other)
  Sender: ALKEM
  Company Number: None

PATIENT
  Age: 5 Year
  Sex: Male

DRUGS (7)
  1. QUETIAPINE FUMARATE [Suspect]
     Active Substance: QUETIAPINE FUMARATE
     Indication: Attention deficit hyperactivity disorder
     Dosage: 25 MILLIGRAM, BID
     Route: 065
  2. QUETIAPINE FUMARATE [Suspect]
     Active Substance: QUETIAPINE FUMARATE
     Indication: Aggression
  3. HALOPERIDOL [Suspect]
     Active Substance: HALOPERIDOL
     Indication: Agitation
     Dosage: 5 MILLIGRAM, ONCE
     Route: 030
  4. ATOMOXETINE [Concomitant]
     Active Substance: ATOMOXETINE
     Indication: Attention deficit hyperactivity disorder
     Dosage: 20 MILLIGRAM, QD
     Route: 065
  5. ATOMOXETINE [Concomitant]
     Active Substance: ATOMOXETINE
     Indication: Aggression
  6. CLONIDINE [Concomitant]
     Active Substance: CLONIDINE
     Indication: Attention deficit hyperactivity disorder
     Dosage: 0.05 MILLIGRAM, BID
     Route: 065
  7. CLONIDINE [Concomitant]
     Active Substance: CLONIDINE
     Indication: Aggression

REACTIONS (2)
  - Catatonia [Recovered/Resolved]
  - Dystonia [Recovered/Resolved]
